FAERS Safety Report 8354742-6 (Version None)
Quarter: 2012Q2

REPORT INFORMATION
  Report Type: 
  Country: None (occurrence: None)
  Receive Date: 20120511
  Receipt Date: 20120509
  Transmission Date: 20120825
  Serious: Yes (Hospitalization)
  Sender: FDA-Public Use
  Company Number: GB-GLAXOSMITHKLINE-B0784193A

PATIENT
  Age: 74 Year
  Sex: Male

DRUGS (5)
  1. MADOPAR [Suspect]
     Indication: PARKINSON'S DISEASE
     Dosage: 125MG PER DAY
     Route: 048
  2. APOMORPHINE HYDROCHLORIDE [Concomitant]
     Indication: PARKINSON'S DISEASE
     Route: 058
     Dates: start: 20120215, end: 20120219
  3. STALEVO 100 [Suspect]
     Indication: PARKINSON'S DISEASE
     Dosage: 1200MG PER DAY
     Route: 048
  4. DOMPERIDONE [Suspect]
     Indication: PARKINSON'S DISEASE
     Dosage: 60MG PER DAY
     Route: 048
     Dates: start: 20120212, end: 20120219
  5. REQUIP XL [Suspect]
     Indication: PARKINSON'S DISEASE
     Dosage: 20MG PER DAY

REACTIONS (4)
  - MYOCARDIAL INFARCTION [None]
  - PNEUMONIA [None]
  - ATRIAL FIBRILLATION [None]
  - OFF LABEL USE [None]
